FAERS Safety Report 5678660-7 (Version None)
Quarter: 2008Q1

REPORT INFORMATION
  Report Type: 
  Country: None (occurrence: None)
  Receive Date: 20080325
  Receipt Date: 20080314
  Transmission Date: 20080703
  Serious: Yes (Other)
  Sender: FDA-Public Use
  Company Number: US-BAYER-200817116NA

PATIENT

DRUGS (3)
  1. NEXAVAR [Suspect]
     Indication: DRUG USE FOR UNKNOWN INDICATION
     Route: 048
  2. AMIODARONE HCL [Concomitant]
     Indication: CONDUCTION DISORDER
  3. TRILEPTAL [Concomitant]
     Indication: CONVULSION

REACTIONS (1)
  - UNEVALUABLE EVENT [None]
